FAERS Safety Report 24575600 (Version 1)
Quarter: 2024Q4

REPORT INFORMATION
  Report Type: Spontaneous
  Country: EU (occurrence: EU)
  Receive Date: 20241104
  Receipt Date: 20241104
  Transmission Date: 20250115
  Serious: Yes (Disabling)
  Sender: Harrow Health
  Company Number: EU-IMP-2024000897

PATIENT

DRUGS (2)
  1. DEXAMETHASONE\NEOMYCIN SULFATE\POLYMYXIN B SULFATE [Suspect]
     Active Substance: DEXAMETHASONE\NEOMYCIN SULFATE\POLYMYXIN B SULFATE
     Indication: Inflammation
     Route: 047
     Dates: start: 20241018
  2. DEXAMETHASONE\NEOMYCIN SULFATE\POLYMYXIN B SULFATE [Suspect]
     Active Substance: DEXAMETHASONE\NEOMYCIN SULFATE\POLYMYXIN B SULFATE
     Indication: Inflammation
     Dosage: 2 DROP
     Route: 065

REACTIONS (1)
  - Hypopyon [Not Recovered/Not Resolved]
